FAERS Safety Report 19683924 (Version 1)
Quarter: 2021Q3

REPORT INFORMATION
  Report Type: Spontaneous
  Country: US (occurrence: US)
  Receive Date: 20210811
  Receipt Date: 20210811
  Transmission Date: 20211014
  Serious: No
  Sender: FDA-Public Use
  Company Number: US-CHIESI-2021CHF01724

PATIENT
  Age: 70 Year
  Sex: Male

DRUGS (5)
  1. TENECTEPLASE [Concomitant]
     Active Substance: TENECTEPLASE
     Indication: PRODUCT USED FOR UNKNOWN INDICATION
     Dosage: UNK
  2. KENGREAL [Suspect]
     Active Substance: CANGRELOR
     Indication: ANTIPLATELET THERAPY
     Dosage: 30 MICROGRAM/KILOGRAM
     Route: 040
     Dates: start: 20210403, end: 20210405
  3. KENGREAL [Suspect]
     Active Substance: CANGRELOR
     Dosage: 0.75 UNK
     Route: 042
     Dates: start: 20210403, end: 20210405
  4. HEPARIN [Concomitant]
     Active Substance: HEPARIN SODIUM
     Indication: PRODUCT USED FOR UNKNOWN INDICATION
     Dosage: UNK
  5. KENGREAL [Suspect]
     Active Substance: CANGRELOR
     Indication: OFF LABEL USE
     Dosage: 4 UNK
     Route: 042
     Dates: start: 20210403, end: 20210405

REACTIONS (1)
  - Off label use [Recovered/Resolved]

NARRATIVE: CASE EVENT DATE: 20210403
